FAERS Safety Report 17015179 (Version 1)
Quarter: 2019Q4

REPORT INFORMATION
  Report Type: Spontaneous
  Country: DK (occurrence: DK)
  Receive Date: 20191111
  Receipt Date: 20191111
  Transmission Date: 20200122
  Serious: Yes (Other)
  Sender: FDA-Public Use
  Company Number: DK-TEVA-2019-DK-1135757

PATIENT
  Age: 67 Year
  Sex: Female

DRUGS (6)
  1. ONTRUZANT [Suspect]
     Active Substance: TRASTUZUMAB-DTTB
     Indication: BREAST CANCER
     Dosage: STRENGTH: 150 MG, DOSE: 597 MG PER 3 WEEKS
     Dates: start: 20171213, end: 20181111
  2. ZOLEDRONSYRE ^ACTAVIS^ [Concomitant]
     Active Substance: ZOLEDRONIC ACID
     Indication: OSTEOPOROSIS PROPHYLAXIS
     Dosage: STRENGTH: 4 MG/5 ML.  TWO TREATMENTS. 27OKT2017 AND 24APR2018.
     Route: 042
     Dates: start: 20171027, end: 20180424
  3. LETROZOLE. [Concomitant]
     Active Substance: LETROZOLE
     Indication: HORMONE THERAPY
     Dosage: STRENGTH: 2.5 MG, 2.5 MG PER DAY
     Route: 048
     Dates: start: 201802
  4. EPIRUBICIN ^TEVA^ [Suspect]
     Active Substance: EPIRUBICIN
     Indication: BREAST CANCER
     Dosage: STRENGTH: 2 MG/ML.  180 MG PER 3 WEEKS
     Dates: start: 20171006, end: 20171117
  5. SENDOXAN [Suspect]
     Active Substance: CYCLOPHOSPHAMIDE
     Indication: BREAST CANCER
     Dosage: STRENGTH: UNKNOWN. 1200 MG PER 3 WEEKS
     Dates: start: 20171006, end: 20171117
  6. PACLITAXEL ^FRESENIUS KABI^ [Suspect]
     Active Substance: PACLITAXEL
     Indication: BREAST CANCER
     Dosage: STRENGTH: 6 MG/ML, 160 MG PER WEEK
     Dates: start: 20171213, end: 20180215

REACTIONS (3)
  - Cardiac failure [Recovering/Resolving]
  - Dyspnoea [Recovering/Resolving]
  - Cardiac dysfunction [Not Recovered/Not Resolved]

NARRATIVE: CASE EVENT DATE: 201808
